FAERS Safety Report 22607427 (Version 2)
Quarter: 2023Q2

REPORT INFORMATION
  Report Type: Report from Study
  Country: BD (occurrence: BD)
  Receive Date: 20230616
  Receipt Date: 20230619
  Transmission Date: 20230721
  Serious: Yes (Death, Hospitalization)
  Sender: FDA-Public Use
  Company Number: BD-002147023-NVSC2023BD137140

PATIENT
  Age: 46 Year
  Sex: Female
  Weight: 56 kg

DRUGS (1)
  1. FEMARA [Suspect]
     Active Substance: LETROZOLE
     Indication: Breast cancer
     Dosage: 2.5 MG, QD
     Route: 048
     Dates: start: 2022, end: 20230520

REACTIONS (2)
  - Hepatic cancer [Fatal]
  - Second primary malignancy [Fatal]

NARRATIVE: CASE EVENT DATE: 20230301
